FAERS Safety Report 7212447-9 (Version None)
Quarter: 2011Q1

REPORT INFORMATION
  Report Type: 
  Country: None (occurrence: None)
  Receive Date: 20110106
  Receipt Date: 20101231
  Transmission Date: 20110831
  Serious: Yes (Death)
  Sender: FDA-Public Use
  Company Number: US-PFIZER INC-2011000442

PATIENT
  Age: 69 Year
  Sex: Female

DRUGS (5)
  1. ALPRAZOLAM [Suspect]
  2. DILTIAZEM [Suspect]
  3. LISINOPRIL [Suspect]
  4. FUROSEMIDE [Suspect]
  5. CARVEDILOL [Suspect]

REACTIONS (2)
  - COMPLETED SUICIDE [None]
  - INTENTIONAL DRUG MISUSE [None]
